FAERS Safety Report 4781788-7 (Version None)
Quarter: 2005Q3

REPORT INFORMATION
  Report Type: 
  Country: None (occurrence: None)
  Receive Date: 20050927
  Receipt Date: 20050916
  Transmission Date: 20060218
  Serious: No
  Sender: FDA-Public Use
  Company Number: 05H-163-0302517-00

PATIENT
  Sex: Female

DRUGS (2)
  1. CARBOCAINE [Suspect]
     Indication: ANAESTHESIA
     Dosage: 2 CAPSULES, ONCE,  INJECTION
     Dates: start: 20050809, end: 20050809
  2. SEPTICAINE [Suspect]
     Indication: ANAESTHESIA
     Dosage: 3 CAPSULES, ONCE, INJECTION
     Dates: start: 20050809, end: 20050809

REACTIONS (11)
  - ANAESTHETIC COMPLICATION [None]
  - DRUG INEFFECTIVE [None]
  - DRUG INTERACTION [None]
  - DYSPHAGIA [None]
  - HALLUCINATION, VISUAL [None]
  - HYPOAESTHESIA ORAL [None]
  - OVERDOSE [None]
  - POST PROCEDURAL COMPLICATION [None]
  - SIMPLE PARTIAL SEIZURES [None]
  - SPEECH DISORDER [None]
  - VITREOUS HAEMORRHAGE [None]
